FAERS Safety Report 8842243 (Version 1)
Quarter: 2012Q4

REPORT INFORMATION
  Report Type: 
  Country: US (occurrence: US)
  Receive Date: 20121016
  Receipt Date: 20121016
  Transmission Date: 20130627
  Serious: Yes (Life-Threatening, Hospitalization, Other)
  Sender: FDA-Public Use
  Company Number: US-GENZYME-CLOF-1002353

PATIENT
  Age: 1 Year
  Sex: Female
  Weight: 15 kg

DRUGS (5)
  1. CLOLAR [Suspect]
     Indication: LYMPHOCYTIC LEUKAEMIA
     Dosage: 18 mg (30 mg/m2/dose), qd
     Route: 065
     Dates: start: 20120529, end: 20120602
  2. CYCLOPHOSPHAMIDE [Suspect]
     Indication: LYMPHOCYTIC LEUKAEMIA
     Dosage: 264 mg (440 mg/m2/dose), qd
     Route: 065
     Dates: start: 20120529, end: 20120602
  3. ETOPOSIDE [Suspect]
     Indication: LYMPHOCYTIC LEUKAEMIA
     Dosage: 60 mg (100 mg/m2/dose), qd
     Route: 065
     Dates: start: 20120529, end: 20120602
  4. PEG-L-ASPARAGINASE (PEGASPARGASE, ONCOSPAR) [Suspect]
     Indication: LYMPHOCYTIC LEUKAEMIA
     Dosage: UNK
     Route: 065
     Dates: start: 2012, end: 20120612
  5. VINCRISTINE SULFATE [Suspect]
     Indication: LYMPHOCYTIC LEUKAEMIA
     Dosage: UNK
     Route: 065
     Dates: start: 2012, end: 20120612

REACTIONS (18)
  - Small intestinal obstruction [Recovered/Resolved]
  - Gamma-glutamyltransferase increased [Recovered/Resolved]
  - Hypokalaemia [Recovered/Resolved]
  - Hypoxia [Recovered/Resolved]
  - Lipase increased [Recovered/Resolved]
  - Respiratory failure [Recovered/Resolved]
  - Bone marrow failure [Unknown]
  - Pancreas infection [Recovered/Resolved]
  - Sepsis [Unknown]
  - White blood cell count decreased [Unknown]
  - Neutrophil count decreased [Recovered/Resolved]
  - Alanine aminotransferase increased [Recovered/Resolved]
  - Blood bilirubin increased [Recovered/Resolved]
  - Aspartate aminotransferase increased [Recovered/Resolved]
  - Febrile neutropenia [Unknown]
  - Pneumonia streptococcal [Unknown]
  - Splenic abscess [Unknown]
  - Pancytopenia [Unknown]
